FAERS Safety Report 16717422 (Version 1)
Quarter: 2019Q3

REPORT INFORMATION
  Report Type: Spontaneous
  Country: US (occurrence: DE)
  Receive Date: 20190819
  Receipt Date: 20190819
  Transmission Date: 20191005
  Serious: No
  Sender: FDA-Public Use
  Company Number: US-JNJFOC-20190733599

PATIENT
  Sex: Male
  Weight: 65 kg

DRUGS (2)
  1. COBICISTAT W/ELVITEGRAVIR/EMTRICITA/08773701/ [Suspect]
     Active Substance: COBICISTAT\ELVITEGRAVIR\EMTRICITABINE\TENOFOVIR
     Indication: HIV INFECTION
     Dosage: 200/251 25 MG
     Route: 048
     Dates: start: 20170906, end: 20180123
  2. SYMTUZA [Suspect]
     Active Substance: COBICISTAT\DARUNAVIR\EMTRICITABINE\TENOFOVIR ALAFENAMIDE
     Indication: HIV INFECTION
     Dosage: 800/150/200/10 MG
     Route: 048
     Dates: start: 20180124, end: 20180207

REACTIONS (1)
  - Diarrhoea [Recovered/Resolved]

NARRATIVE: CASE EVENT DATE: 20180124
